FAERS Safety Report 23302653 (Version 1)
Quarter: 2023Q4

REPORT INFORMATION
  Report Type: Spontaneous
  Country: US (occurrence: US)
  Receive Date: 20231215
  Receipt Date: 20231215
  Transmission Date: 20240105
  Serious: No
  Sender: FDA-Public Use
  Company Number: US-SA-SAC20231211000803

PATIENT
  Age: 28 Year
  Sex: Female

DRUGS (1)
  1. DUPIXENT [Suspect]
     Active Substance: DUPILUMAB
     Indication: Dermatitis atopic
     Dosage: 300 MG, QOW
     Route: 058

REACTIONS (5)
  - Pruritus [Unknown]
  - Skin haemorrhage [Unknown]
  - Dry skin [Unknown]
  - Skin fissures [Unknown]
  - Product dose omission in error [Unknown]
